FAERS Safety Report 6407469-1 (Version None)
Quarter: 2009Q4

REPORT INFORMATION
  Report Type: 
  Country: None (occurrence: None)
  Receive Date: 20091015
  Receipt Date: 20091008
  Transmission Date: 20100525
  Serious: Yes (Death)
  Sender: FDA-Public Use
  Company Number: 2008JP003889

PATIENT
  Age: 73 Year
  Sex: Female
  Weight: 50 kg

DRUGS (7)
  1. VESICARE [Suspect]
     Indication: HYPERTONIC BLADDER
     Dosage: 5 MG, UID/QD, ORAL
     Route: 048
     Dates: start: 20070209, end: 20080820
  2. HYPOCA       (BARNIDIPINE)                           FORMULATION UNKNO [Suspect]
     Indication: HYPERTENSION
     Dosage: 15 MG, /D, ORAL
     Route: 048
  3. SPIROPENT              (CLENBUTEROL HYDROCHLORIDE) [Concomitant]
  4. MOBIC [Concomitant]
  5. ISALON (ALDIOXA) [Concomitant]
  6. MAGMITT (MAGNESIUM OXIDE) [Concomitant]
  7. TOLEDOMIN (MILNACIPRAN HYDROCHLORIDE) [Concomitant]

REACTIONS (1)
  - DRY MOUTH [None]
